FAERS Safety Report 8126131-0 (Version None)
Quarter: 2012Q1

REPORT INFORMATION
  Report Type: 
  Country: None (occurrence: None)
  Receive Date: 20120209
  Receipt Date: 20120202
  Transmission Date: 20120608
  Serious: Yes (Hospitalization, Other)
  Sender: FDA-Public Use
  Company Number: US-US-EMD SERONO, INC.-230610K05USA

PATIENT
  Sex: Female

DRUGS (2)
  1. REBIF [Suspect]
     Indication: MULTIPLE SCLEROSIS
     Route: 058
     Dates: start: 20040621
  2. LIORESAL [Suspect]
     Indication: MULTIPLE SCLEROSIS
     Route: 037
     Dates: start: 20041001

REACTIONS (5)
  - MITRAL VALVE DISEASE [None]
  - MUSCLE SPASMS [None]
  - MENINGITIS CHEMICAL [None]
  - THROMBOSIS [None]
  - PULMONARY THROMBOSIS [None]
